FAERS Safety Report 10792630 (Version 4)
Quarter: 2015Q3

REPORT INFORMATION
  Report Type: Report from Study
  Country: US (occurrence: US)
  Receive Date: 20150213
  Receipt Date: 20150703
  Transmission Date: 20151125
  Serious: Yes (Other)
  Sender: FDA-Public Use
  Company Number: US-009507513-1502USA004845

PATIENT
  Age: 61 Year
  Sex: Male
  Weight: 97.42 kg

DRUGS (4)
  1. CYTOXAN [Suspect]
     Active Substance: CYCLOPHOSPHAMIDE
     Indication: PLASMA CELL MYELOMA
     Dosage: 450 MG, FREQUENCY: DAY 1
     Route: 048
     Dates: start: 20140903, end: 20150514
  2. DEXAMETHASONE. [Suspect]
     Active Substance: DEXAMETHASONE
     Indication: PLASMA CELL MYELOMA
     Dosage: 40 MG (DAY 22)
     Route: 048
     Dates: start: 20140930, end: 20150514
  3. CARFILZOMIB [Suspect]
     Active Substance: CARFILZOMIB
     Indication: PLASMA CELL MYELOMA
     Dosage: 30 MG, FREQUENCY: DAYS:1,2,8,9,15,16
     Route: 042
     Dates: start: 20140903
  4. DEXAMETHASONE SODIUM PHOSPHATE. [Suspect]
     Active Substance: DEXAMETHASONE SODIUM PHOSPHATE
     Indication: PLASMA CELL MYELOMA
     Dosage: 20 MG  (DAYS 1, 2, 8, 9, 15, 16)
     Route: 042
     Dates: start: 20140903, end: 20150514

REACTIONS (2)
  - Second primary malignancy [Not Recovered/Not Resolved]
  - Upper respiratory tract infection [Unknown]

NARRATIVE: CASE EVENT DATE: 20141113
